FAERS Safety Report 7641255-X (Version None)
Quarter: 2011Q3

REPORT INFORMATION
  Report Type: 
  Country: None (occurrence: None)
  Receive Date: 20110728
  Receipt Date: 20110718
  Transmission Date: 20111222
  Serious: Yes (Other)
  Sender: FDA-Public Use
  Company Number: US-PERRIGO-11US005839

PATIENT
  Sex: Female
  Weight: 71.655 kg

DRUGS (2)
  1. TUSSIN DM MAX 799 [Suspect]
     Indication: COUGH
     Dosage: 10 ML, SINGLE
     Route: 048
     Dates: start: 20110626, end: 20110626
  2. TUSSIN DM MAX 799 [Suspect]
     Dosage: 10 ML, SINGLE
     Route: 048
     Dates: start: 20110628, end: 20110628

REACTIONS (3)
  - ABDOMINAL PAIN UPPER [None]
  - VOMITING [None]
  - DIARRHOEA [None]
